FAERS Safety Report 16126566 (Version 1)
Quarter: 2019Q1

REPORT INFORMATION
  Report Type: Spontaneous
  Country: US (occurrence: US)
  Receive Date: 20190222
  Receipt Date: 20190222
  Transmission Date: 20190418
  Serious: No
  Sender: FDA-Public Use
  Company Number: None

PATIENT

DRUGS (1)
  1. XIIDRA [Suspect]
     Active Substance: LIFITEGRAST
     Indication: DRY EYE
     Dosage: ?          QUANTITY:5 % PERCENT;?
     Route: 047
     Dates: start: 201812, end: 20190211

REACTIONS (5)
  - Nasal obstruction [None]
  - Nasopharyngitis [None]
  - Sinus pain [None]
  - Fatigue [None]
  - Sinusitis [None]

NARRATIVE: CASE EVENT DATE: 20190106
